FAERS Safety Report 13186074 (Version 1)
Quarter: 2017Q1

REPORT INFORMATION
  Report Type: Report from Study
  Country: CN (occurrence: CN)
  Receive Date: 20170204
  Receipt Date: 20170204
  Transmission Date: 20170428
  Serious: Yes (Other)
  Sender: FDA-Public Use
  Company Number: CN-BAXTER-2016BAX013932

PATIENT
  Age: 64 Year
  Sex: Female

DRUGS (13)
  1. ENDOXAN [Suspect]
     Active Substance: CYCLOPHOSPHAMIDE
     Indication: B-CELL LYMPHOMA
     Dosage: 6 CYCLES
     Route: 041
     Dates: start: 20111230, end: 20120315
  2. PREDNISONE. [Suspect]
     Active Substance: PREDNISONE
     Dosage: 6 CYCLES
     Route: 048
     Dates: start: 20111230, end: 20120315
  3. ENDOXAN [Suspect]
     Active Substance: CYCLOPHOSPHAMIDE
     Indication: DIFFUSE LARGE B-CELL LYMPHOMA
     Dosage: 3 CYCLES OF R-CHOP
     Route: 041
     Dates: start: 20111116, end: 20111229
  4. VINCRISTINE [Suspect]
     Active Substance: VINCRISTINE
     Indication: B-CELL LYMPHOMA
     Dosage: 6 CYCLES
     Route: 041
     Dates: start: 20111230, end: 20120315
  5. RITUXIMAB [Suspect]
     Active Substance: RITUXIMAB
     Indication: B-CELL LYMPHOMA
     Dosage: 6 CYCLES
     Route: 041
     Dates: start: 20111230, end: 20120314
  6. VINCRISTINE [Suspect]
     Active Substance: VINCRISTINE
     Indication: DIFFUSE LARGE B-CELL LYMPHOMA
     Dosage: 3 CYCLES OF R-CHOP
     Route: 041
     Dates: start: 20111116, end: 20111129
  7. GEMCITABINE [Suspect]
     Active Substance: GEMCITABINE\GEMCITABINE HYDROCHLORIDE
     Indication: DIFFUSE LARGE B-CELL LYMPHOMA
     Dosage: ONE CYCLE
     Route: 041
     Dates: start: 20120524
  8. RITUXIMAB [Suspect]
     Active Substance: RITUXIMAB
     Indication: DIFFUSE LARGE B-CELL LYMPHOMA
     Dosage: 3 CYCLES OF R-CHOP
     Route: 041
     Dates: start: 20111115, end: 20111229
  9. EPIRUBICIN [Suspect]
     Active Substance: EPIRUBICIN
     Indication: DIFFUSE LARGE B-CELL LYMPHOMA
     Dosage: 3 CYCLES OF R-CHOP
     Route: 041
     Dates: start: 20111116, end: 20111129
  10. DEXAMETHASONE. [Suspect]
     Active Substance: DEXAMETHASONE
     Indication: DIFFUSE LARGE B-CELL LYMPHOMA
     Dosage: ONE CYCLE
     Route: 065
     Dates: start: 20120524
  11. EPIRUBICIN [Suspect]
     Active Substance: EPIRUBICIN
     Indication: B-CELL LYMPHOMA
     Dosage: 6 CYCLES
     Route: 041
     Dates: start: 20111230, end: 20120315
  12. PREDNISONE. [Suspect]
     Active Substance: PREDNISONE
     Indication: DIFFUSE LARGE B-CELL LYMPHOMA
     Dosage: 3 CYCLES OF R-CHOP
     Route: 048
     Dates: start: 20111116, end: 20111129
  13. CISPLATIN. [Suspect]
     Active Substance: CISPLATIN
     Indication: DIFFUSE LARGE B-CELL LYMPHOMA
     Dosage: ONE CYCLE
     Route: 041
     Dates: start: 20120524

REACTIONS (4)
  - Neutropenia [Recovering/Resolving]
  - Anaemia [Unknown]
  - Neutropenia [Recovered/Resolved]
  - Disease progression [Unknown]

NARRATIVE: CASE EVENT DATE: 20120119
